FAERS Safety Report 18659467 (Version 1)
Quarter: 2020Q4

REPORT INFORMATION
  Report Type: Spontaneous
  Country: US (occurrence: US)
  Receive Date: 20201223
  Receipt Date: 20201223
  Transmission Date: 20210114
  Serious: Yes (Hospitalization)
  Sender: FDA-Public Use
  Company Number: None

PATIENT
  Age: 68 Year
  Sex: Male

DRUGS (1)
  1. TIZANIDINE (TIZANIDINE HCL 4MG TAB) [Suspect]
     Active Substance: TIZANIDINE HYDROCHLORIDE
     Indication: MUSCLE SPASMS
     Route: 048
     Dates: start: 20191030, end: 20201216

REACTIONS (3)
  - Hypotension [None]
  - Bradycardia [None]
  - Mental status changes [None]

NARRATIVE: CASE EVENT DATE: 20201216
